FAERS Safety Report 7185374-3 (Version None)
Quarter: 2010Q4

REPORT INFORMATION
  Report Type: 
  Country: None (occurrence: None)
  Receive Date: 20101222
  Receipt Date: 20100603
  Transmission Date: 20110411
  Serious: No
  Sender: FDA-Public Use
  Company Number: US-AMGEN-KDL416072

PATIENT

DRUGS (1)
  1. ENBREL [Suspect]
     Indication: PRODUCT USED FOR UNKNOWN INDICATION
     Dosage: 50 MG, QWK
     Route: 058

REACTIONS (5)
  - BURNING SENSATION [None]
  - CHEST PAIN [None]
  - CHILLS [None]
  - INJECTION SITE PRURITUS [None]
  - INJECTION SITE RASH [None]
